FAERS Safety Report 8051108-3 (Version None)
Quarter: 2012Q1

REPORT INFORMATION
  Report Type: 
  Country: None (occurrence: None)
  Receive Date: 20120117
  Receipt Date: 20120112
  Transmission Date: 20120608
  Serious: Yes (Hospitalization)
  Sender: FDA-Public Use
  Company Number: PHEH2012US001321

PATIENT
  Sex: Female

DRUGS (1)
  1. EXJADE [Suspect]
     Indication: THALASSAEMIA SICKLE CELL
     Dosage: 2000 MG DAILY
     Route: 048
     Dates: start: 20090831

REACTIONS (1)
  - LUNG DISORDER [None]
